FAERS Safety Report 15809601 (Version 5)
Quarter: 2019Q2

REPORT INFORMATION
  Report Type: Spontaneous
  Country: US (occurrence: US)
  Receive Date: 20190111
  Receipt Date: 20190625
  Transmission Date: 20190711
  Serious: No
  Sender: FDA-Public Use
  Company Number: US-TAKEDA-2018MPI018364

PATIENT
  Age: 80 Year
  Sex: Female
  Weight: 76.64 kg

DRUGS (2)
  1. POMALYST [Suspect]
     Active Substance: POMALIDOMIDE
     Indication: PRODUCT USED FOR UNKNOWN INDICATION
     Dosage: UNK
     Route: 065
  2. NINLARO [Suspect]
     Active Substance: IXAZOMIB CITRATE
     Indication: PLASMA CELL MYELOMA
     Dosage: 3 MILLIGRAM, UNK
     Route: 048
     Dates: start: 20180518, end: 201905

REACTIONS (11)
  - Ocular hyperaemia [Unknown]
  - Off label use [Unknown]
  - Nodule [Unknown]
  - Gait disturbance [Unknown]
  - Blood glucose increased [Unknown]
  - Asthenia [Unknown]
  - Confusional state [Unknown]
  - Viral infection [Unknown]
  - Nasal congestion [Unknown]
  - Conjunctivitis [Unknown]
  - Fatigue [Unknown]

NARRATIVE: CASE EVENT DATE: 20190118
